FAERS Safety Report 5317553-1 (Version None)
Quarter: 2007Q2

REPORT INFORMATION
  Report Type: 
  Country: None (occurrence: None)
  Receive Date: 20070507
  Receipt Date: 20070425
  Transmission Date: 20071010
  Serious: Yes (Other)
  Sender: FDA-Public Use
  Company Number: PHFR2007GB01442

PATIENT
  Sex: Female

DRUGS (1)
  1. ESTRADERM [Suspect]
     Route: 062

REACTIONS (2)
  - DEPRESSION [None]
  - MOOD ALTERED [None]
